FAERS Safety Report 12492867 (Version 1)
Quarter: 2016Q2

REPORT INFORMATION
  Report Type: Spontaneous
  Country: ES (occurrence: ES)
  Receive Date: 20160623
  Receipt Date: 20160623
  Transmission Date: 20160815
  Serious: Yes (Hospitalization, Other)
  Sender: FDA-Public Use
  Company Number: ES-ASTRAZENECA-2016SE66793

PATIENT
  Age: 50 Year
  Sex: Male

DRUGS (3)
  1. PULMICORT TBH [Suspect]
     Active Substance: BUDESONIDE
     Indication: ASTHMA
     Dosage: TOTAL DOSE 1200/24 H -3 PUFF/12 H, 600 EVERY 12 HOURS
     Route: 055
  2. SALMETEROL [Concomitant]
     Active Substance: SALMETEROL
     Indication: ASTHMA
  3. VENTOLIN [Concomitant]
     Active Substance: ALBUTEROL SULFATE
     Indication: ASTHMA

REACTIONS (6)
  - Fall [Unknown]
  - Syncope [Recovered/Resolved]
  - Musculoskeletal stiffness [Unknown]
  - Head injury [Unknown]
  - Speech disorder [Unknown]
  - Dizziness [Unknown]
